FAERS Safety Report 4332869-3 (Version None)
Quarter: 2004Q1

REPORT INFORMATION
  Report Type: 
  Country: None (occurrence: None)
  Receive Date: 20040330
  Receipt Date: 20040318
  Transmission Date: 20041129
  Serious: Yes (Other)
  Sender: FDA-Public Use
  Company Number: HQWYE048124MAR04

PATIENT
  Age: 14 Year
  Sex: Male

DRUGS (1)
  1. ADVIL [Suspect]
     Dosage: 2 TABLETS, ORAL
     Route: 048
     Dates: start: 20030101, end: 20030101

REACTIONS (2)
  - OEDEMA PERIPHERAL [None]
  - SWELLING FACE [None]
